FAERS Safety Report 6464666-7 (Version None)
Quarter: 2009Q4

REPORT INFORMATION
  Report Type: 
  Country: None (occurrence: None)
  Receive Date: 20091201
  Receipt Date: 20091124
  Transmission Date: 20100525
  Serious: Yes (Hospitalization)
  Sender: FDA-Public Use
  Company Number: A0832079A

PATIENT
  Age: 38 Year
  Sex: Male

DRUGS (2)
  1. SORIATANE [Suspect]
     Indication: PSORIASIS
     Dosage: 25MG PER DAY
     Route: 048
     Dates: start: 20090901, end: 20091101
  2. NO CONCURRENT MEDICATIONS [Concomitant]

REACTIONS (1)
  - CEREBROVASCULAR ACCIDENT [None]
